FAERS Safety Report 9909725 (Version 2)
Quarter: 2014Q2

REPORT INFORMATION
  Report Type: Spontaneous
  Country: US (occurrence: None)
  Receive Date: 20140212
  Receipt Date: 20140619
  Transmission Date: 20141212
  Serious: Yes (Other)
  Sender: FDA-Public Use
  Company Number: 2014-US-001533

PATIENT
  Age: 61 Year
  Sex: Female
  Weight: 51.7 kg

DRUGS (3)
  1. XYREM [Suspect]
     Indication: NARCOLEPSY
     Route: 048
     Dates: start: 200711
  2. VITAMIN D (ERGOCALCIFEROL) [Concomitant]
  3. THYROID THERAPY [Concomitant]

REACTIONS (2)
  - Hyperthyroidism [None]
  - Heart rate increased [None]
